FAERS Safety Report 4983686-2 (Version None)
Quarter: 2006Q2

REPORT INFORMATION
  Report Type: 
  Country: None (occurrence: None)
  Receive Date: 20060425
  Receipt Date: 20060425
  Transmission Date: 20061013
  Serious: Yes (Hospitalization)
  Sender: FDA-Public Use
  Company Number: None

PATIENT
  Sex: Male

DRUGS (8)
  1. IBUPROFEN [Suspect]
     Indication: ARTHRALGIA
     Dosage: 800 MG TID
     Dates: start: 20060117, end: 20060127
  2. PREDNISONE TAB [Suspect]
     Dosage: 60 MG -} TAPER
     Dates: start: 20060127
  3. VICODIN [Concomitant]
  4. RANITIDINE [Concomitant]
  5. INSULIN [Concomitant]
  6. FLEXERIL [Concomitant]
  7. FELODIPINE [Concomitant]
  8. METFORMIN [Concomitant]

REACTIONS (3)
  - BLOOD PRESSURE ORTHOSTATIC ABNORMAL [None]
  - MELAENA [None]
  - SYNCOPE [None]
